FAERS Safety Report 8278976-4 (Version None)
Quarter: 2012Q2

REPORT INFORMATION
  Report Type: 
  Country: None (occurrence: None)
  Receive Date: 20120412
  Receipt Date: 20110502
  Transmission Date: 20120825
  Serious: No
  Sender: FDA-Public Use
  Company Number: US-ASTRAZENECA-2011SE25670

PATIENT
  Age: 45 Year
  Sex: Female
  Weight: 62.3 kg

DRUGS (16)
  1. ZOLPIDEM TARTRATE [Concomitant]
     Dosage: 10 MG ONE TABLET ONCE AT HS PRN ONLY
     Route: 048
  2. LEVOTHYROXINE SODIUM [Concomitant]
     Route: 048
  3. BUTALBITAL APAP [Concomitant]
     Dosage: 50-325 MG ONE TABLET AS NEEDED DAILY
  4. ALBUTEROL SULFATE AUTOHALER [Concomitant]
     Dosage: 108(90 BASE) MCG/ACT 2 PUFFS FOUR TIMES A DAY AS NEEDED
  5. REGLAN [Concomitant]
     Dosage: 10 MG ONE TABLET 30 MINUTES BEFORE MEALS AND AT BEDTIME FOUR TIMES A DAY
     Route: 048
  6. TRAMADOL HCL [Concomitant]
     Indication: PAIN
     Dosage: 50 MG ONE TABLET AS NEEDED FOR PAIN THREE TIMES A DAY
     Route: 048
  7. LORATADINE [Concomitant]
     Route: 048
  8. ATROVENT HFA [Concomitant]
     Dosage: 17 MCG/ACT TWO PUFFS FOUR TIMES A DAY PRN
  9. ESTRADIOL [Concomitant]
     Route: 048
  10. NEXIUM [Suspect]
     Route: 048
  11. SERTRALINE HYDROCHLORIDE [Concomitant]
     Route: 048
  12. CLONAZEPAM [Concomitant]
     Route: 048
  13. SEROQUEL [Suspect]
     Dosage: 100 MG ONE AND HALF TABLET ONCE EVERY NIGHT
     Route: 048
  14. MULTI-VITAMINS [Concomitant]
     Route: 048
  15. BACLOFEN [Concomitant]
     Dosage: 10 MG TWICE A DAY PRN SPARINGLY
     Route: 048
  16. OXYBUTYNIN CHLORIDE [Concomitant]
     Route: 048

REACTIONS (25)
  - EAR PAIN [None]
  - HYPOTHYROIDISM [None]
  - SKIN LESION [None]
  - OESOPHAGEAL STENOSIS [None]
  - CHRONIC OBSTRUCTIVE PULMONARY DISEASE [None]
  - HIATUS HERNIA [None]
  - UPPER-AIRWAY COUGH SYNDROME [None]
  - DYSPNOEA [None]
  - NERVOUSNESS [None]
  - COUGH [None]
  - BACK PAIN [None]
  - SINUS OPERATION [None]
  - HYPOKINESIA [None]
  - HEADACHE [None]
  - ARTHRALGIA [None]
  - WHEEZING [None]
  - BRONCHITIS [None]
  - CRYING [None]
  - GASTROOESOPHAGEAL REFLUX DISEASE [None]
  - GAIT DISTURBANCE [None]
  - MIGRAINE [None]
  - ACUTE SINUSITIS [None]
  - GENERAL PHYSICAL HEALTH DETERIORATION [None]
  - CYANOSIS [None]
  - OEDEMA [None]
